FAERS Safety Report 11563234 (Version 1)
Quarter: 2015Q3

REPORT INFORMATION
  Report Type: Spontaneous
  Country: US (occurrence: US)
  Receive Date: 20150928
  Receipt Date: 20150928
  Transmission Date: 20151125
  Serious: Yes (Death, Life-Threatening, Hospitalization, Disabling)
  Sender: FDA-Public Use
  Company Number: US-JNJFOC-970417-107052521

PATIENT
  Age: 62 Year
  Sex: Female

DRUGS (14)
  1. KLONOPIN [Concomitant]
     Active Substance: CLONAZEPAM
     Route: 065
     Dates: end: 19961129
  2. PHENYLPROPANOLAMINE [Interacting]
     Active Substance: PHENYLPROPANOLAMINE
     Indication: PRODUCT USED FOR UNKNOWN INDICATION
     Route: 065
     Dates: end: 19961129
  3. PSEUDOEPHEDRINE HYDROCHLORIDE. [Suspect]
     Active Substance: PSEUDOEPHEDRINE HYDROCHLORIDE
     Indication: PRODUCT USED FOR UNKNOWN INDICATION
     Route: 065
     Dates: end: 19961129
  4. AUGMENTIN [Concomitant]
     Active Substance: AMOXICILLIN\CLAVULANATE POTASSIUM
     Route: 065
     Dates: end: 19961129
  5. DARVOCET-N 100 [Concomitant]
     Active Substance: ACETAMINOPHEN\PROPOXYPHENE NAPSYLATE
     Route: 065
     Dates: end: 19961129
  6. CHLORZOXAZONE (CHLORZOXAZONE) [Suspect]
     Active Substance: CHLORZOXAZONE
     Indication: PRODUCT USED FOR UNKNOWN INDICATION
     Route: 065
     Dates: end: 19961129
  7. AMITRIPTYLINE [Suspect]
     Active Substance: AMITRIPTYLINE
     Indication: PRODUCT USED FOR UNKNOWN INDICATION
     Route: 065
     Dates: end: 19961129
  8. XANAX [Concomitant]
     Active Substance: ALPRAZOLAM
     Route: 065
     Dates: end: 19961129
  9. PHENTERMINE HCL [Interacting]
     Active Substance: PHENTERMINE HYDROCHLORIDE
     Indication: PRODUCT USED FOR UNKNOWN INDICATION
     Route: 048
     Dates: end: 19961129
  10. ATENOLOL. [Concomitant]
     Active Substance: ATENOLOL
     Route: 065
     Dates: end: 19961129
  11. PONDIMIN [Suspect]
     Active Substance: FENFLURAMINE HYDROCHLORIDE
     Indication: PRODUCT USED FOR UNKNOWN INDICATION
     Route: 048
     Dates: start: 199611, end: 19961129
  12. AMBIEN [Concomitant]
     Active Substance: ZOLPIDEM TARTRATE
     Route: 065
     Dates: end: 19961129
  13. PHENELZINE [Suspect]
     Active Substance: PHENELZINE
     Indication: PRODUCT USED FOR UNKNOWN INDICATION
     Route: 048
     Dates: start: 19961103, end: 19961129
  14. DOPAMINE [Concomitant]
     Active Substance: DOPAMINE\DOPAMINE HYDROCHLORIDE
     Route: 065
     Dates: end: 19961129

REACTIONS (18)
  - Body temperature increased [Unknown]
  - Drug interaction [Unknown]
  - Pneumonia [Unknown]
  - Toxicity to various agents [None]
  - Paralysis [None]
  - Haemodialysis [None]
  - Acute kidney injury [Unknown]
  - Disseminated intravascular coagulation [Unknown]
  - Rhabdomyolysis [Unknown]
  - Mental status changes [Fatal]
  - Apallic syndrome [None]
  - Pneumonia klebsiella [None]
  - Respiratory failure [Unknown]
  - Hepatic failure [Unknown]
  - Metabolic encephalopathy [None]
  - Hypotension [None]
  - Coma [Unknown]
  - Candida test positive [None]

NARRATIVE: CASE EVENT DATE: 19961120
